FAERS Safety Report 5382885-8 (Version None)
Quarter: 2007Q3

REPORT INFORMATION
  Report Type: 
  Country: None (occurrence: None)
  Receive Date: 20070702
  Receipt Date: 20070423
  Transmission Date: 20080115
  Serious: No
  Sender: FDA-Public Use
  Company Number: 2007PV032842

PATIENT
  Age: 67 Year
  Sex: Female

DRUGS (2)
  1. SYMLIN [Suspect]
     Indication: TYPE 1 DIABETES MELLITUS
     Dosage: 30 MCG;SC
     Route: 058
     Dates: start: 20070423
  2. HUMALOG [Concomitant]

REACTIONS (3)
  - BLOOD GLUCOSE DECREASED [None]
  - HUNGER [None]
  - WHEEZING [None]
